FAERS Safety Report 18563759 (Version 1)
Quarter: 2020Q4

REPORT INFORMATION
  Report Type: Spontaneous
  Country: US (occurrence: US)
  Receive Date: 20201201
  Receipt Date: 20201201
  Transmission Date: 20210114
  Serious: Yes (Hospitalization, Other)
  Sender: FDA-Public Use
  Company Number: US-SA-2020SA338615

PATIENT

DRUGS (3)
  1. DIPHENHYDRAMINE. [Suspect]
     Active Substance: DIPHENHYDRAMINE
     Dosage: 25 MG, QD
     Route: 064
  2. TRAZODONE HYDROCHLORIDE. [Suspect]
     Active Substance: TRAZODONE HYDROCHLORIDE
     Dosage: 50 MG, QD
     Route: 064
  3. PAROXETINE HYDROCHLORIDE. [Suspect]
     Active Substance: PAROXETINE HYDROCHLORIDE
     Dosage: 20 MG, QD
     Route: 064

REACTIONS (8)
  - Hypoglycaemia neonatal [Recovering/Resolving]
  - Agitation neonatal [Recovering/Resolving]
  - Lethargy [Recovering/Resolving]
  - Hypotonia [Recovering/Resolving]
  - Hyporesponsive to stimuli [Recovering/Resolving]
  - Hyporeflexia [Recovering/Resolving]
  - Foetal exposure during pregnancy [Recovering/Resolving]
  - Drug withdrawal syndrome neonatal [Unknown]
